FAERS Safety Report 14283290 (Version 1)
Quarter: 2017Q4

REPORT INFORMATION
  Report Type: Spontaneous
  Country: BA (occurrence: BA)
  Receive Date: 20171213
  Receipt Date: 20171213
  Transmission Date: 20180321
  Serious: Yes (Other)
  Sender: FDA-Public Use
  Company Number: BA-GLAXOSMITHKLINE-BA2017GSK185287

PATIENT
  Age: 45 Year
  Sex: Female

DRUGS (1)
  1. ZINNAT [Suspect]
     Active Substance: CEFUROXIME AXETIL
     Indication: UPPER RESPIRATORY TRACT INFECTION
     Dosage: 500 MG, UNK
     Route: 048

REACTIONS (3)
  - Pruritus [Unknown]
  - Haematochezia [Unknown]
  - Urticaria [Unknown]
